FAERS Safety Report 24006072 (Version 1)
Quarter: 2024Q2

REPORT INFORMATION
  Report Type: Spontaneous
  Country: US (occurrence: None)
  Receive Date: 20240622
  Receipt Date: 20240622
  Transmission Date: 20240716
  Serious: Yes (Life-Threatening, Hospitalization)
  Sender: FDA-Public Use
  Company Number: None

PATIENT
  Age: 58 Year
  Sex: Male

DRUGS (2)
  1. LISINOPRIL [Suspect]
     Active Substance: LISINOPRIL
     Dosage: FREQUENCY : DAILY;?
     Route: 048
     Dates: start: 20220705, end: 20240611
  2. ALOGLIPTIN [Suspect]
     Active Substance: ALOGLIPTIN
     Dosage: FREQUENCY : DAILY;?
     Route: 048
     Dates: start: 20190710

REACTIONS (1)
  - Angioedema [None]

NARRATIVE: CASE EVENT DATE: 20240612
